FAERS Safety Report 9286005 (Version 1)
Quarter: 2013Q2

REPORT INFORMATION
  Report Type: Spontaneous
  Country: US (occurrence: None)
  Receive Date: 20130508
  Receipt Date: 20130508
  Transmission Date: 20140414
  Serious: No
  Sender: FDA-Public Use
  Company Number: LIT-13-0013-W

PATIENT
  Age: 47 Year
  Sex: Male

DRUGS (5)
  1. AZITHROMYCIN [Suspect]
     Indication: UPPER RESPIRATORY TRACT INFECTION
  2. METHADONE 10MG [Concomitant]
  3. LISINOPRIL/ HCTZ [Concomitant]
  4. BENZONATATE [Concomitant]
  5. ACETAMINOPHEN, DEXTROMETHORPHAN,+ DOXYLAMINE [Concomitant]

REACTIONS (4)
  - Unresponsive to stimuli [None]
  - Electrocardiogram QT prolonged [None]
  - Arrhythmia [None]
  - Drug interaction [None]
